FAERS Safety Report 23548515 (Version 3)
Quarter: 2024Q1

REPORT INFORMATION
  Report Type: Report from Study
  Country: US (occurrence: US)
  Receive Date: 20240221
  Receipt Date: 20240314
  Transmission Date: 20240410
  Serious: Yes (Other)
  Sender: FDA-Public Use
  Company Number: US-JNJFOC-20240234888

PATIENT
  Age: 4 Decade
  Sex: Male

DRUGS (3)
  1. SPRAVATO [Suspect]
     Active Substance: ESKETAMINE
     Indication: Depression
     Dosage: 56 MG, 1 TOTAL DOSES
     Dates: start: 20220329, end: 20220329
  2. SPRAVATO [Suspect]
     Active Substance: ESKETAMINE
     Indication: Major depression
     Dosage: 84 MG, 26 TOTAL DOSES
     Dates: start: 20220330, end: 20230814
  3. SPRAVATO [Suspect]
     Active Substance: ESKETAMINE
     Dates: start: 20240219, end: 20240219

REACTIONS (3)
  - COVID-19 [Unknown]
  - Pregnancy of partner [Recovered/Resolved]
  - Treatment noncompliance [Unknown]
